FAERS Safety Report 21348420 (Version 1)
Quarter: 2022Q3

REPORT INFORMATION
  Report Type: Spontaneous
  Country: CA (occurrence: CA)
  Receive Date: 20220919
  Receipt Date: 20220919
  Transmission Date: 20221026
  Serious: Yes (Hospitalization, Other)
  Sender: FDA-Public Use
  Company Number: CA-SA-2022SA373582

PATIENT
  Age: 47 Year
  Sex: Female

DRUGS (18)
  1. LEFLUNOMIDE [Suspect]
     Active Substance: LEFLUNOMIDE
     Dosage: 10 MG, QD
  2. XELJANZ [Suspect]
     Active Substance: TOFACITINIB CITRATE
     Indication: Arthritis
     Dosage: 1 DF
     Route: 048
  3. ACTEMRA [Concomitant]
     Active Substance: TOCILIZUMAB
  4. KINERET [Concomitant]
     Active Substance: ANAKINRA
     Dosage: 100 MG, BID
  5. CANAKINUMAB [Concomitant]
     Active Substance: CANAKINUMAB
  6. COLCHICINE [Concomitant]
     Active Substance: COLCHICINE
     Dosage: UNK
  7. ELAVIL [Concomitant]
     Active Substance: AMITRIPTYLINE HYDROCHLORIDE
     Dosage: 10 MG, PRN
     Route: 048
  8. ESOMEPRAZOLE MAGNESIUM [Concomitant]
     Active Substance: ESOMEPRAZOLE MAGNESIUM
     Dosage: 40 MG, QD
     Route: 048
  9. HULIO [Concomitant]
     Active Substance: ADALIMUMAB-FKJP
  10. MEDROL [Concomitant]
     Active Substance: METHYLPREDNISOLONE
     Dosage: UNK
     Dates: end: 201812
  11. METHOTREXATE [Concomitant]
     Active Substance: METHOTREXATE
  12. HYDROXYCHLOROQUINE SULFATE [Concomitant]
     Active Substance: HYDROXYCHLOROQUINE SULFATE
     Dosage: UNK
     Dates: end: 201812
  13. SULFASALAZINE [Concomitant]
     Active Substance: SULFASALAZINE
  14. SYMBICORT [Concomitant]
     Active Substance: BUDESONIDE\FORMOTEROL FUMARATE DIHYDRATE
     Dosage: UNK
  15. SYNTHROID [Concomitant]
     Active Substance: LEVOTHYROXINE SODIUM
     Dosage: 200 MCG, QD
  16. VENTOLIN HFA [Concomitant]
     Active Substance: ALBUTEROL SULFATE
     Dosage: UNK
  17. DILAUDID [Concomitant]
     Active Substance: HYDROMORPHONE HYDROCHLORIDE
     Indication: Pain
     Dosage: 1 MG, Q4H
  18. MELOXICAM [Concomitant]
     Active Substance: MELOXICAM
     Indication: Pain
     Dosage: 7.5 MG, BID
     Route: 048

REACTIONS (36)
  - Pyrexia [Unknown]
  - Headache [Unknown]
  - Back pain [Unknown]
  - Cytopenia [Unknown]
  - Renal tubular necrosis [Unknown]
  - Acute kidney injury [Unknown]
  - Thrombocytopenia [Unknown]
  - Lung opacity [Unknown]
  - Pulmonary embolism [Unknown]
  - Haemophagocytic lymphohistiocytosis [Unknown]
  - Still^s disease [Unknown]
  - Condition aggravated [Unknown]
  - Off label use [Unknown]
  - Drug ineffective for unapproved indication [Unknown]
  - Hyperhidrosis [Unknown]
  - Dyspnoea [Unknown]
  - Productive cough [Unknown]
  - Sputum abnormal [Unknown]
  - Pain [Unknown]
  - Symptom recurrence [Unknown]
  - Hypertension [Unknown]
  - Hepatosplenomegaly [Unknown]
  - Blood lactate dehydrogenase increased [Unknown]
  - Serum ferritin increased [Unknown]
  - Anaemia [Unknown]
  - Night sweats [Unknown]
  - Respiratory disorder [Unknown]
  - C-reactive protein increased [Unknown]
  - Red blood cell sedimentation rate increased [Unknown]
  - Blood creatine phosphokinase increased [Unknown]
  - Crepitations [Unknown]
  - Joint swelling [Unknown]
  - Wrist deformity [Unknown]
  - Arthralgia [Unknown]
  - Lymphadenopathy [Unknown]
  - Chest pain [Unknown]

NARRATIVE: CASE EVENT DATE: 20140101
